FAERS Safety Report 11999743 (Version 1)
Quarter: 2016Q1

REPORT INFORMATION
  Report Type: Spontaneous
  Country: GB (occurrence: GB)
  Receive Date: 20160204
  Receipt Date: 20160204
  Transmission Date: 20160526
  Serious: Yes (Other)
  Sender: FDA-Public Use
  Company Number: GB-ACCORD-037423

PATIENT
  Age: 64 Year
  Sex: Male
  Weight: 65 kg

DRUGS (3)
  1. ATORVASTATIN [Concomitant]
     Active Substance: ATORVASTATIN
     Dates: start: 20150925
  2. AMLODIPINE [Suspect]
     Active Substance: AMLODIPINE BESYLATE
     Indication: PRODUCT USED FOR UNKNOWN INDICATION
     Dates: start: 20150925
  3. RAMIPRIL. [Concomitant]
     Active Substance: RAMIPRIL
     Dates: start: 20160118

REACTIONS (3)
  - Sleep disorder [Unknown]
  - Erectile dysfunction [Recovered/Resolved]
  - Polyuria [Unknown]

NARRATIVE: CASE EVENT DATE: 20160119
